FAERS Safety Report 17396836 (Version 1)
Quarter: 2020Q1

REPORT INFORMATION
  Report Type: Report from Study
  Country: ES (occurrence: ES)
  Receive Date: 20200210
  Receipt Date: 20200210
  Transmission Date: 20200409
  Serious: Yes (Other)
  Sender: FDA-Public Use
  Company Number: ES-ROCHE-2544940

PATIENT
  Age: 70 Year
  Sex: Male

DRUGS (1)
  1. ATEZOLIZUMAB. [Suspect]
     Active Substance: ATEZOLIZUMAB
     Indication: ADENOCARCINOMA PANCREAS
     Route: 041

REACTIONS (6)
  - Myopathy [Unknown]
  - Dysphagia [Unknown]
  - Atrioventricular block [Unknown]
  - Muscular weakness [Unknown]
  - Myasthenic syndrome [Unknown]
  - Myositis [Unknown]
